FAERS Safety Report 9832944 (Version 2)
Quarter: 2014Q1

REPORT INFORMATION
  Report Type: Spontaneous
  Country: DK (occurrence: AU)
  Receive Date: 20140121
  Receipt Date: 20140218
  Transmission Date: 20141002
  Serious: Yes (Hospitalization)
  Sender: FDA-Public Use
  Company Number: AU-FRI-1000052948

PATIENT
  Age: 36 Year
  Sex: Male

DRUGS (10)
  1. ESCITALOPRAM [Suspect]
     Indication: DEPRESSION
     Dosage: 10 MG
     Route: 048
     Dates: start: 20131014, end: 20131127
  2. WARFARIN SODIUM [Suspect]
     Indication: HEART DISEASE CONGENITAL
     Dosage: 4 MG
     Route: 048
     Dates: end: 20131210
  3. AMIODARONE HYDROCHLORIDE [Concomitant]
     Dosage: 200 MG
  4. CARVEDILOL HYDROCHLORIDE [Concomitant]
     Dosage: 12.5 MG
  5. FRUSEMIDE [Concomitant]
     Dosage: 80 MG
  6. LEVETIRACETAM [Concomitant]
     Dosage: 1000 MG
  7. LEVETIRACETAM [Concomitant]
     Dosage: 2000 MG
     Dates: start: 201311
  8. LISINOPRIL [Concomitant]
     Dosage: 10 MG
  9. SODIUM VALPROATE [Concomitant]
     Dosage: 1000 MG MANE/500 MG NOCTE
  10. THYROXINE SODIUM [Concomitant]
     Dosage: 50 MCG
     Route: 048
     Dates: start: 20131105

REACTIONS (4)
  - Hypotension [Not Recovered/Not Resolved]
  - Ventricular tachycardia [Not Recovered/Not Resolved]
  - Convulsion [Not Recovered/Not Resolved]
  - Diarrhoea [Recovered/Resolved]
